FAERS Safety Report 7447495-7 (Version None)
Quarter: 2011Q2

REPORT INFORMATION
  Report Type: 
  Country: None (occurrence: None)
  Receive Date: 20110420
  Receipt Date: 20110408
  Transmission Date: 20111010
  Serious: Yes (Hospitalization)
  Sender: FDA-Public Use
  Company Number: WAES 0710USA06045

PATIENT
  Age: 74 Year
  Sex: Female

DRUGS (12)
  1. LOXONIN [Concomitant]
  2. ALFAROL [Concomitant]
  3. BEZATOL [Concomitant]
  4. GLYCORAN [Concomitant]
  5. ZETIA [Suspect]
     Indication: HYPERCHOLESTEROLAEMIA
     Dosage: 10MG, DAILY, PO
     Route: 048
     Dates: start: 20071006, end: 20071019
  6. PLAVIX [Concomitant]
  7. TENORMIN [Concomitant]
  8. OMEPRAL [Concomitant]
  9. FRANDOL [Concomitant]
  10. CANDESARTAN CILEXETIL [Concomitant]
  11. GASMOTIN [Concomitant]
  12. SALOBEL [Concomitant]

REACTIONS (5)
  - HEPATIC FUNCTION ABNORMAL [None]
  - ASTHENIA [None]
  - RHABDOMYOLYSIS [None]
  - GAIT DISTURBANCE [None]
  - BLOOD CREATINE PHOSPHOKINASE INCREASED [None]
